FAERS Safety Report 4534258-5 (Version None)
Quarter: 2004Q4

REPORT INFORMATION
  Report Type: 
  Country: None (occurrence: None)
  Receive Date: 20041222
  Receipt Date: 20041101
  Transmission Date: 20050328
  Serious: Yes (Hospitalization)
  Sender: FDA-Public Use
  Company Number: JP-BRISTOL-MYERS SQUIBB COMPANY-12751988

PATIENT
  Age: 65 Year
  Sex: Male

DRUGS (3)
  1. PARAPLATIN [Suspect]
     Indication: SMALL CELL LUNG CANCER STAGE UNSPECIFIED
     Route: 042
     Dates: start: 20040726, end: 20040726
  2. VEPESID [Suspect]
     Indication: SMALL CELL LUNG CANCER STAGE UNSPECIFIED
     Route: 042
     Dates: start: 20040726, end: 20040728
  3. RADIOTHERAPY [Concomitant]
     Dosage: 66 GY
     Dates: start: 20040723, end: 20040909

REACTIONS (2)
  - LIVER DISORDER [None]
  - PYREXIA [None]
